FAERS Safety Report 6974732-5 (Version None)
Quarter: 2010Q3

REPORT INFORMATION
  Report Type: 
  Country: None (occurrence: None)
  Receive Date: 20100909
  Receipt Date: 20090106
  Transmission Date: 20110219
  Serious: No
  Sender: FDA-Public Use
  Company Number: US-WYE-H07135908

PATIENT
  Sex: Male
  Weight: 106.69 kg

DRUGS (4)
  1. PRISTIQ [Suspect]
     Indication: DEPRESSION
     Route: 048
     Dates: start: 20081103
  2. PRISTIQ [Suspect]
     Indication: ANXIETY
  3. CLORAZEPATE DIPOTASSIUM [Concomitant]
  4. ABILIFY [Concomitant]

REACTIONS (9)
  - CONSTIPATION [None]
  - FATIGUE [None]
  - FEELING JITTERY [None]
  - INCREASED APPETITE [None]
  - MIDDLE INSOMNIA [None]
  - NERVOUSNESS [None]
  - NOCTURIA [None]
  - TACHYPHRENIA [None]
  - WEIGHT INCREASED [None]
